FAERS Safety Report 6279829-3 (Version None)
Quarter: 2009Q3

REPORT INFORMATION
  Report Type: 
  Country: None (occurrence: None)
  Receive Date: 20090723
  Receipt Date: 20090713
  Transmission Date: 20100115
  Serious: Yes (Other)
  Sender: FDA-Public Use
  Company Number: PHEH2009US07488

PATIENT
  Age: 59 Year
  Sex: Male

DRUGS (2)
  1. DIOVAN [Suspect]
     Indication: HYPERTENSION
     Dosage: 160 UNK, QD
     Route: 048
  2. NORVASC [Concomitant]

REACTIONS (2)
  - NASAL POLYPS [None]
  - POLYPECTOMY [None]
